FAERS Safety Report 14221204 (Version 4)
Quarter: 2018Q1

REPORT INFORMATION
  Report Type: Spontaneous
  Country: US (occurrence: US)
  Receive Date: 20171124
  Receipt Date: 20180319
  Transmission Date: 20180508
  Serious: Yes (Hospitalization, Other)
  Sender: FDA-Public Use
  Company Number: US-PFIZER INC-2017505675

PATIENT
  Age: 56 Year
  Sex: Female
  Weight: 113.4 kg

DRUGS (19)
  1. PANCREAZE /00620701/ [Concomitant]
     Dosage: 1 CAPSULE, 4X/DAY[PANCREAZE 10,500 UNIT-35,500 UNIT -61,500 UNIT ]
  2. CLONAZEPAM. [Concomitant]
     Active Substance: CLONAZEPAM
     Dosage: 1 MG, (1 TABLET THREE TIMES DAILY, AND TAKE 2 TABLETS AT BEDTIME)
     Route: 048
  3. DILTIAZEM CD [Concomitant]
     Active Substance: DILTIAZEM
     Dosage: 300 MG, DAILY
  4. CITALOPRAM [Concomitant]
     Active Substance: CITALOPRAM HYDROBROMIDE
     Dosage: 20 MG, DAILY
  5. DIPHENOXYLATE/ATROPINE [Concomitant]
     Active Substance: ATROPINE\DIPHENOXYLATE
     Dosage: 1 DF, AS NEEDED [DIPHENOXYLATE (2.5 MG)]/[ ATROPINE(0.025 MG]
  6. LOSARTAN AND HYDROCHLOROTHIAZIDE [Concomitant]
     Active Substance: HYDROCHLOROTHIAZIDE\LOSARTAN POTASSIUM
     Dosage: 1 TABLET DAILY
  7. DEPO-MEDROL [Concomitant]
     Active Substance: METHYLPREDNISOLONE ACETATE
     Dosage: 1 ML, UNK
     Route: 030
  8. DICYCLOMINE [Concomitant]
     Active Substance: DICYCLOMINE HYDROCHLORIDE
     Dosage: 1 TABLET 4 TIMES DAILY BEFORE MEALS AND AT BEDTIME AS NEEDED
     Route: 048
  9. JANUVIA [Concomitant]
     Active Substance: SITAGLIPTIN PHOSPHATE
     Dosage: 50 MG, DAILY
     Route: 048
  10. COLESTIPOL HCL [Suspect]
     Active Substance: COLESTIPOL HYDROCHLORIDE
     Indication: DIARRHOEA
     Dosage: 1 G, 3X/DAY
     Route: 048
  11. COLESTIPOL HCL [Suspect]
     Active Substance: COLESTIPOL HYDROCHLORIDE
     Dosage: 20 MG, 1X/DAY
     Dates: start: 2004
  12. CITALOPRAM [Concomitant]
     Active Substance: CITALOPRAM HYDROBROMIDE
     Dosage: 40 MG, DAILY
  13. COLESTIPOL HCL [Suspect]
     Active Substance: COLESTIPOL HYDROCHLORIDE
     Dosage: 1 G, 2X/DAY
     Route: 048
  14. FIORINAL WITH CODEINE [Concomitant]
     Active Substance: ASPIRIN\BUTALBITAL\CAFFEINE\CODEINE PHOSPHATE
     Indication: MIGRAINE
     Dosage: 1 CAPSULE AS NEEDED
     Route: 048
  15. MONTELUKAST [Concomitant]
     Active Substance: MONTELUKAST SODIUM
     Dosage: 10 MG, DAILY
     Route: 048
  16. URSODIOL. [Concomitant]
     Active Substance: URSODIOL
     Dosage: 300 MG, DAILY
  17. ALBUTEROL SULFATE. [Concomitant]
     Active Substance: ALBUTEROL SULFATE
     Dosage: 2.5 MG/3 ML ONE NEBULE  EVERY 4-6 HOURS AS NEEDED
  18. VIT B 12 [Concomitant]
     Dosage: 1MG WEEKLY FOR 70 DAYS
     Route: 030
  19. ESTRADIOL. [Concomitant]
     Active Substance: ESTRADIOL
     Dosage: 2 MG, DAILY

REACTIONS (2)
  - Rectal haemorrhage [Not Recovered/Not Resolved]
  - Drug ineffective for unapproved indication [Not Recovered/Not Resolved]

NARRATIVE: CASE EVENT DATE: 2004
